FAERS Safety Report 5585339-9 (Version None)
Quarter: 2008Q1

REPORT INFORMATION
  Report Type: 
  Country: None (occurrence: None)
  Receive Date: 20080104
  Receipt Date: 20071219
  Transmission Date: 20080703
  Serious: Yes (Other)
  Sender: FDA-Public Use
  Company Number: B0500647A

PATIENT
  Age: 47 Year
  Sex: Female

DRUGS (1)
  1. ACETAMINOPHEN [Suspect]
     Indication: DRUG USE FOR UNKNOWN INDICATION
     Dosage: 1 TABLET / SINGLE / ORAL
     Route: 048

REACTIONS (3)
  - ANAPHYLACTIC REACTION [None]
  - DRY THROAT [None]
  - PHARMACEUTICAL PRODUCT COMPLAINT [None]
